FAERS Safety Report 4665884-0 (Version None)
Quarter: 2005Q2

REPORT INFORMATION
  Report Type: 
  Country: None (occurrence: None)
  Receive Date: 20050517
  Receipt Date: 20050429
  Transmission Date: 20051028
  Serious: Yes (Other)
  Sender: FDA-Public Use
  Company Number: USA050496897

PATIENT
  Age: 61 Year
  Sex: Female
  Weight: 132 kg

DRUGS (12)
  1. EVISTA [Suspect]
     Dosage: 60 MG DAY
     Dates: start: 20020101
  2. FORTEO [Suspect]
     Indication: BONE DENSITY DECREASED
     Dosage: 20 UG/1 DAY
     Dates: start: 20050420
  3. PLAVIX [Concomitant]
  4. LIPITOR [Concomitant]
  5. HYDROCHLOROTHIAZIDE W/VALSARTAN [Concomitant]
  6. ACIPHEX [Concomitant]
  7. MOBIC [Concomitant]
  8. TRAMADOL [Concomitant]
  9. ACETAMINOPHEN [Concomitant]
  10. CALCIUM WITH VITAMIN D [Concomitant]
  11. VIT C TAB [Concomitant]
  12. MULTI-VITAMIN [Concomitant]

REACTIONS (6)
  - ARTHRALGIA [None]
  - BONE PAIN [None]
  - CORONARY ARTERIAL STENT INSERTION [None]
  - HIP ARTHROPLASTY [None]
  - PHARMACEUTICAL PRODUCT COMPLAINT [None]
  - ROTATOR CUFF REPAIR [None]
